FAERS Safety Report 9441257 (Version 3)
Quarter: 2014Q2

REPORT INFORMATION
  Report Type: Spontaneous
  Country: FR (occurrence: FR)
  Receive Date: 20130805
  Receipt Date: 20140408
  Transmission Date: 20141212
  Serious: Yes (Hospitalization, Other)
  Sender: FDA-Public Use
  Company Number: FR-GILEAD-2013-0080306

PATIENT
  Age: 50 Year
  Sex: Female

DRUGS (9)
  1. TRUVADA [Suspect]
     Indication: HIV INFECTION
     Dosage: UNK
     Route: 048
     Dates: start: 20130115, end: 20130127
  2. EPIRUBICINE TEVA [Suspect]
     Indication: INVASIVE LOBULAR BREAST CARCINOMA
     Dosage: 100 MG/M2, QD
     Route: 042
     Dates: start: 20130118
  3. EPIRUBICINE TEVA [Suspect]
     Dosage: 75 MG/M2, QD
     Route: 042
  4. ENDOXAN                            /00021101/ [Suspect]
     Indication: INVASIVE LOBULAR BREAST CARCINOMA
     Dosage: UNK
     Route: 042
     Dates: start: 20130118
  5. NORVIR [Suspect]
     Indication: HIV INFECTION
     Dosage: 100 MG, QD
     Route: 048
     Dates: start: 20130115, end: 20130127
  6. REYATAZ [Suspect]
     Indication: HIV INFECTION
     Dosage: 300 MG, QD
     Route: 048
     Dates: start: 20130115, end: 20130127
  7. VERPAMIL [Concomitant]
     Indication: HYPERTENSION
  8. COKENZEN [Concomitant]
     Indication: HYPERTENSION
  9. ATARAX                             /00058401/ [Concomitant]

REACTIONS (9)
  - Cholestasis [Recovered/Resolved]
  - Pancytopenia [Recovering/Resolving]
  - Mucosal inflammation [Recovered/Resolved]
  - Hyponatraemia [Recovered/Resolved]
  - Blood culture positive [Recovered/Resolved]
  - Pyrexia [Recovered/Resolved]
  - Jaundice [Recovered/Resolved]
  - Asthenia [Unknown]
  - Renal failure acute [Recovered/Resolved]
